FAERS Safety Report 11408873 (Version 3)
Quarter: 2015Q4

REPORT INFORMATION
  Report Type: Spontaneous
  Country: US (occurrence: US)
  Receive Date: 20150823
  Receipt Date: 20151030
  Transmission Date: 20160304
  Serious: No
  Sender: FDA-Public Use
  Company Number: US-AMGEN-USASP2015085762

PATIENT
  Age: 12 Year
  Sex: Male
  Weight: 32.83 kg

DRUGS (1)
  1. ENBREL [Suspect]
     Active Substance: ETANERCEPT
     Indication: PSORIASIS
     Dosage: 25 MG, 1X WEEK
     Route: 058
     Dates: start: 20150226

REACTIONS (2)
  - Product solubility abnormal [Unknown]
  - Off label use [Unknown]
